FAERS Safety Report 5511373-0 (Version None)
Quarter: 2007Q4

REPORT INFORMATION
  Report Type: 
  Country: None (occurrence: None)
  Receive Date: 20071109
  Receipt Date: 20070926
  Transmission Date: 20080405
  Serious: No
  Sender: FDA-Public Use
  Company Number: A0684379A

PATIENT
  Age: 68 Year
  Sex: Female

DRUGS (4)
  1. ALTABAX [Suspect]
     Indication: FACE INJURY
     Route: 061
     Dates: start: 20070921, end: 20070922
  2. TRIAMTERENE AND HYDROCHLOROTHIAZIDE [Concomitant]
  3. ALLOPURINOL [Concomitant]
  4. MULTI-VITAMIN [Concomitant]

REACTIONS (3)
  - LIP SWELLING [None]
  - PRURITUS [None]
  - SWELLING FACE [None]
